FAERS Safety Report 4873234-X (Version None)
Quarter: 2006Q1

REPORT INFORMATION
  Report Type: 
  Country: None (occurrence: None)
  Receive Date: 20060105
  Receipt Date: 20060102
  Transmission Date: 20060701
  Serious: Yes (Other)
  Sender: FDA-Public Use
  Company Number: FR-MERCK-0601FRA00011

PATIENT
  Age: 35 Year
  Sex: Female

DRUGS (3)
  1. INDOCIN [Suspect]
     Indication: RHEUMATOID ARTHRITIS
     Route: 048
     Dates: end: 20051028
  2. INDOCIN SR [Suspect]
     Indication: RHEUMATOID ARTHRITIS
     Route: 048
     Dates: end: 20051028
  3. METHOTREXATE [Suspect]
     Indication: SJOGREN'S SYNDROME
     Route: 065
     Dates: end: 20051028

REACTIONS (2)
  - ABORTION SPONTANEOUS [None]
  - DRUG EXPOSURE DURING PREGNANCY [None]
